FAERS Safety Report 23329708 (Version 1)
Quarter: 2023Q4

REPORT INFORMATION
  Report Type: Spontaneous
  Country: US (occurrence: US)
  Receive Date: 20231222
  Receipt Date: 20231222
  Transmission Date: 20240110
  Serious: No
  Sender: FDA-Public Use
  Company Number: US-OPELLA-2023OHG019573

PATIENT
  Sex: Male

DRUGS (1)
  1. DULCOLAX PINK [Suspect]
     Active Substance: BISACODYL
     Indication: Bowel movement irregularity
     Route: 048

REACTIONS (3)
  - Dysgeusia [Unknown]
  - Vomiting [Unknown]
  - Wrong technique in product usage process [Unknown]
